FAERS Safety Report 15454062 (Version 1)
Quarter: 2018Q4

REPORT INFORMATION
  Report Type: Spontaneous
  Country: US (occurrence: US)
  Receive Date: 20181002
  Receipt Date: 20181002
  Transmission Date: 20190204
  Serious: No
  Sender: FDA-Public Use
  Company Number: US-TORRENT-00006010

PATIENT
  Sex: Male
  Weight: 86 kg

DRUGS (3)
  1. LISINOPRIL. [Concomitant]
     Active Substance: LISINOPRIL
     Indication: ARTHRITIS
     Dosage: QD, UNKNOWN
  2. ZOLPIDEM TARTRATE. [Suspect]
     Active Substance: ZOLPIDEM TARTRATE
     Indication: SLEEP DISORDER
     Dosage: AT BED TIME (10:00 PM EST)
     Dates: end: 2018
  3. ZOLPIDEM TARTRATE. [Concomitant]
     Active Substance: ZOLPIDEM TARTRATE
     Indication: PRODUCT USED FOR UNKNOWN INDICATION
     Dosage: UNKNOWN, QD

REACTIONS (3)
  - Drug ineffective [Unknown]
  - Disorientation [Unknown]
  - Product substitution issue [Unknown]
